FAERS Safety Report 18489809 (Version 2)
Quarter: 2020Q4

REPORT INFORMATION
  Report Type: Spontaneous
  Country: ES (occurrence: ES)
  Receive Date: 20201111
  Receipt Date: 20201223
  Transmission Date: 20210114
  Serious: Yes (Other)
  Sender: FDA-Public Use
  Company Number: ES-NOVOPROD-765079

PATIENT
  Age: 16 Year
  Sex: Male

DRUGS (1)
  1. NOVORAPID [Suspect]
     Active Substance: INSULIN ASPART
     Indication: TYPE 1 DIABETES MELLITUS
     Dosage: 42 IU, QD
     Route: 058
     Dates: start: 202011, end: 202011

REACTIONS (3)
  - Diabetic ketoacidosis [Recovered/Resolved]
  - Product physical issue [Unknown]
  - Product leakage [Unknown]

NARRATIVE: CASE EVENT DATE: 20201101
